FAERS Safety Report 4396806-8 (Version None)
Quarter: 2004Q3

REPORT INFORMATION
  Report Type: 
  Country: None (occurrence: None)
  Receive Date: 20040714
  Receipt Date: 20031210
  Transmission Date: 20050211
  Serious: Yes (Other)
  Sender: FDA-Public Use
  Company Number: PHEH2003US11282

PATIENT
  Age: 68 Year
  Sex: Female

DRUGS (11)
  1. ZOMETA [Suspect]
     Indication: OSTEOPOROSIS
     Dosage: 4 MG, OT
     Route: 042
     Dates: start: 20020218, end: 20031201
  2. RITUXAN [Concomitant]
     Indication: LYMPHOMA
  3. VITAMIN B-12 [Concomitant]
  4. FOLATE SODIUM [Concomitant]
  5. CALCIUM [Concomitant]
  6. EFFEXOR [Concomitant]
     Indication: DEPRESSION
  7. VITAMIN D [Concomitant]
  8. LIPITOR [Concomitant]
     Indication: HYPERCHOLESTEROLAEMIA
  9. TRAZODONE HCL [Concomitant]
     Indication: SLEEP DISORDER
  10. MACRODANTIN [Concomitant]
     Indication: SLEEP DISORDER
  11. ACTONEL [Concomitant]
     Dosage: 5 MG, QD
     Route: 048
     Dates: start: 20001116, end: 20011105

REACTIONS (3)
  - OSTEOMYELITIS [None]
  - OSTEONECROSIS [None]
  - PAIN IN JAW [None]
